FAERS Safety Report 15777178 (Version 1)
Quarter: 2018Q4

REPORT INFORMATION
  Report Type: Spontaneous
  Country: US (occurrence: US)
  Receive Date: 20181231
  Receipt Date: 20181231
  Transmission Date: 20190205
  Serious: No
  Sender: FDA-Public Use
  Company Number: US-BAUSCH-BL-2018-035718

PATIENT
  Age: 67 Year
  Sex: Female

DRUGS (2)
  1. REFRESH OPTIVE GEL DROPS [Concomitant]
     Active Substance: CARBOXYMETHYLCELLULOSE SODIUM\GLYCERIN
     Indication: PRODUCT USED FOR UNKNOWN INDICATION
     Dosage: 1 DROP IN EACH EYE, 0.5 TO 1 HOUR AFTER INSTILLING THE LOTEMAX.
     Route: 047
     Dates: start: 20181214, end: 20181219
  2. LOTEMAX [Suspect]
     Active Substance: LOTEPREDNOL ETABONATE
     Indication: DRY EYE
     Dosage: 1 DROP IN EACH EYE
     Route: 047
     Dates: start: 20181214, end: 20181219

REACTIONS (1)
  - Diplopia [Recovering/Resolving]

NARRATIVE: CASE EVENT DATE: 20181218
